FAERS Safety Report 7564746-9 (Version None)
Quarter: 2011Q2

REPORT INFORMATION
  Report Type: 
  Country: None (occurrence: None)
  Receive Date: 20110622
  Receipt Date: 20101021
  Transmission Date: 20111010
  Serious: Yes (Other)
  Sender: FDA-Public Use
  Company Number: US-MYLANLABS-2010S1019390

PATIENT
  Age: 56 Year
  Sex: Female

DRUGS (11)
  1. PANTOPRAZOL /01263202/ [Concomitant]
     Route: 048
  2. CLOZAPINE [Suspect]
     Route: 048
     Dates: start: 20101019
  3. KLONOPIN [Concomitant]
     Route: 048
  4. CLOZAPINE [Suspect]
     Route: 048
     Dates: end: 20101018
  5. ALBUTEROL SULFATE AUTOHALER [Concomitant]
     Route: 048
  6. BENZTROPINE MESYLATE [Concomitant]
     Route: 048
  7. CLOZAPINE [Suspect]
     Indication: BIPOLAR DISORDER
     Route: 048
     Dates: end: 20101018
  8. CLOZAPINE [Suspect]
     Route: 048
     Dates: start: 20101019
  9. DIVALPROEX SODIUM [Concomitant]
     Route: 048
  10. COLACE [Concomitant]
     Route: 048
  11. PREMARIN [Concomitant]
     Route: 048

REACTIONS (1)
  - GRANULOCYTOPENIA [None]
